FAERS Safety Report 7501249-1 (Version None)
Quarter: 2011Q2

REPORT INFORMATION
  Report Type: 
  Country: None (occurrence: None)
  Receive Date: 20110524
  Receipt Date: 20101223
  Transmission Date: 20111010
  Serious: Yes (Other)
  Sender: FDA-Public Use
  Company Number: US-BAYER-200941474NA

PATIENT
  Age: 21 Year
  Sex: Female
  Weight: 77 kg

DRUGS (16)
  1. ACETAZOLAMIDE [Concomitant]
     Route: 048
     Dates: start: 20090101, end: 20090101
  2. MOTRIN [Concomitant]
     Indication: HEADACHE
     Route: 048
     Dates: start: 20090101, end: 20090101
  3. DARVOCET-N 50 [Concomitant]
     Route: 065
     Dates: start: 20090101
  4. ZOFRAN [Concomitant]
     Route: 065
     Dates: start: 20090101, end: 20090101
  5. DIAMOX [Concomitant]
     Route: 065
     Dates: start: 20090101
  6. MIRALAX [Concomitant]
     Route: 065
     Dates: start: 20090101, end: 20090101
  7. ACETAMINOPHEN AND OXYCODONE HCL [Concomitant]
     Route: 048
     Dates: start: 20090101, end: 20090101
  8. NAPROXEN (ALEVE) [Concomitant]
     Route: 065
  9. POTASSIUM CHLORIDE [Concomitant]
     Route: 042
     Dates: start: 20090101, end: 20090101
  10. COLACE [Concomitant]
     Route: 048
     Dates: start: 20090101, end: 20090101
  11. YAZ [Suspect]
     Indication: PREMENSTRUAL SYNDROME
     Route: 048
     Dates: start: 20060901, end: 20090101
  12. REGLAN [Concomitant]
     Route: 042
     Dates: start: 20090101, end: 20090101
  13. YAZ [Suspect]
     Indication: CONTRACEPTION
  14. ADVIL LIQUI-GELS [Concomitant]
     Indication: HEADACHE
     Route: 048
     Dates: start: 20090101, end: 20090101
  15. NAPROXEN [Concomitant]
     Route: 065
  16. MORPHINE SULFATE [Concomitant]
     Route: 042
     Dates: start: 20090101, end: 20090101

REACTIONS (6)
  - VITH NERVE PARALYSIS [None]
  - HEADACHE [None]
  - DIZZINESS [None]
  - NAUSEA [None]
  - INSOMNIA [None]
  - INTRACRANIAL VENOUS SINUS THROMBOSIS [None]
